FAERS Safety Report 7318506-4 (Version None)
Quarter: 2011Q1

REPORT INFORMATION
  Report Type: 
  Country: None (occurrence: None)
  Receive Date: 20110228
  Receipt Date: 20110215
  Transmission Date: 20110831
  Serious: Yes (Other)
  Sender: FDA-Public Use
  Company Number: US-PFIZER INC-2010158633

PATIENT
  Sex: Female
  Weight: 56.689 kg

DRUGS (2)
  1. GEODON [Suspect]
     Indication: BIPOLAR II DISORDER
     Dosage: 40 MG, 2X/DAY
     Route: 048
     Dates: start: 20100929
  2. SEROQUEL [Concomitant]
     Dosage: 150 MG, 1X/DAY

REACTIONS (4)
  - AKATHISIA [None]
  - VISUAL IMPAIRMENT [None]
  - ABDOMINAL DISCOMFORT [None]
  - RHINORRHOEA [None]
